FAERS Safety Report 20060424 (Version 1)
Quarter: 2021Q4

REPORT INFORMATION
  Report Type: Spontaneous
  Country: IR (occurrence: IR)
  Receive Date: 20211112
  Receipt Date: 20211112
  Transmission Date: 20220303
  Serious: Yes (Hospitalization, Other)
  Sender: FDA-Public Use
  Company Number: IR-MACLEODS PHARMACEUTICALS US LTD-MAC2021033301

PATIENT

DRUGS (7)
  1. PRAMIPEXOLE [Suspect]
     Active Substance: PRAMIPEXOLE
     Indication: Parkinsonism
     Dosage: 0.7 MG, 0.5 DOSAGE FORM, 1/2 DAILY
     Route: 065
  2. FLUOXETINE [Suspect]
     Active Substance: FLUOXETINE HYDROCHLORIDE
     Indication: Psychotic disorder
     Dosage: UNK
     Route: 065
  3. RISPERIDONE [Concomitant]
     Active Substance: RISPERIDONE
     Indication: Psychotic disorder
     Dosage: 2 MILLIGRAM, QD,PER NIGHT
     Route: 065
  4. FOLIC ACID [Concomitant]
     Active Substance: FOLIC ACID
     Indication: Product used for unknown indication
     Dosage: UNK
     Route: 048
  5. LEVOTHYROXINE [Concomitant]
     Active Substance: LEVOTHYROXINE
     Indication: Hypothyroidism
     Dosage: UNK
     Route: 065
  6. CYANOCOBALAMIN [Concomitant]
     Active Substance: CYANOCOBALAMIN
     Indication: Product used for unknown indication
     Dosage: UNK, VITAMIN B12
     Route: 048
  7. METFORMIN [Concomitant]
     Active Substance: METFORMIN HYDROCHLORIDE
     Indication: Polycystic ovaries
     Dosage: 1000 MILLIGRAM, QD
     Route: 065

REACTIONS (8)
  - Hyperhomocysteinaemia [Recovering/Resolving]
  - Psychotic disorder [Recovering/Resolving]
  - Condition aggravated [Recovering/Resolving]
  - Hallucination, visual [Recovering/Resolving]
  - Ischaemic stroke [Unknown]
  - Cerebral infarction [Unknown]
  - Hyperhomocysteinaemia [Unknown]
  - Mania [Unknown]
